FAERS Safety Report 12694399 (Version 3)
Quarter: 2016Q4

REPORT INFORMATION
  Report Type: Report from Study
  Country: US (occurrence: US)
  Receive Date: 20160829
  Receipt Date: 20161007
  Transmission Date: 20170207
  Serious: Yes (Death, Hospitalization)
  Sender: FDA-Public Use
  Company Number: US-EISAI MEDICAL RESEARCH-E7389-05015-CLI-US

PATIENT
  Age: 55 Year
  Sex: Female
  Weight: 81.6 kg

DRUGS (18)
  1. ERIBULIN [Suspect]
     Active Substance: ERIBULIN
     Indication: BREAST CANCER METASTATIC
     Route: 041
     Dates: start: 20140312, end: 20140319
  2. POL6326 [Suspect]
     Active Substance: INVESTIGATIONAL PRODUCT
     Indication: BREAST CANCER METASTATIC
     Route: 041
     Dates: start: 20140311, end: 20140320
  3. BENZONATATE. [Concomitant]
     Active Substance: BENZONATATE
  4. NICOTINE TRANSDERMAL SYSTEM [Concomitant]
     Active Substance: NICOTINE
  5. GABAPENTIN. [Concomitant]
     Active Substance: GABAPENTIN
  6. GENTAMICIN. [Concomitant]
     Active Substance: GENTAMICIN
  7. HEPARIN [Concomitant]
     Active Substance: HEPARIN SODIUM
  8. FENTANYL. [Concomitant]
     Active Substance: FENTANYL
  9. HYDROCODONE [Concomitant]
     Active Substance: HYDROCODONE
  10. VANCOMYCIN [Concomitant]
     Active Substance: VANCOMYCIN
  11. AZITHROMYCIN ANHYDROUS. [Concomitant]
     Active Substance: AZITHROMYCIN ANHYDROUS
  12. HALOPERIDOL. [Concomitant]
     Active Substance: HALOPERIDOL
  13. CEFEPIME [Concomitant]
     Active Substance: CEFEPIME HYDROCHLORIDE
  14. MORPHINE [Concomitant]
     Active Substance: MORPHINE
  15. MAGNESIUM SULFATE. [Concomitant]
     Active Substance: MAGNESIUM SULFATE
  16. ALBUMIN [Concomitant]
     Active Substance: ALBUMIN HUMAN
  17. POTASSIUM CHLORIDE. [Concomitant]
     Active Substance: POTASSIUM CHLORIDE
  18. OXYCODONE [Concomitant]
     Active Substance: OXYCODONE

REACTIONS (2)
  - Septic shock [Fatal]
  - Pneumonia streptococcal [Recovered/Resolved with Sequelae]

NARRATIVE: CASE EVENT DATE: 20140325
